FAERS Safety Report 4508053-7 (Version None)
Quarter: 2004Q4

REPORT INFORMATION
  Report Type: 
  Country: None (occurrence: None)
  Receive Date: 20041123
  Receipt Date: 20031003
  Transmission Date: 20050328
  Serious: Yes (Other)
  Sender: FDA-Public Use
  Company Number: US-GLAXOSMITHKLINE-A0428685A

PATIENT
  Sex: Female

DRUGS (7)
  1. WELLBUTRIN [Suspect]
  2. VITAMIN E [Concomitant]
  3. FOLATE [Concomitant]
  4. CALCIUM [Concomitant]
  5. LIPITOR [Concomitant]
  6. ASPIRIN [Concomitant]
  7. PROZAC [Concomitant]

REACTIONS (1)
  - VENTRICULAR EXTRASYSTOLES [None]
